FAERS Safety Report 7306771-9 (Version None)
Quarter: 2011Q1

REPORT INFORMATION
  Report Type: 
  Country: None (occurrence: None)
  Receive Date: 20110222
  Receipt Date: 20110216
  Transmission Date: 20110831
  Serious: Yes (Hospitalization)
  Sender: FDA-Public Use
  Company Number: CN-GENZYME-FLUD-1000719

PATIENT
  Age: 52 Year
  Sex: Male

DRUGS (4)
  1. CYCLOPHOSPHAMIDE [Suspect]
     Indication: CHRONIC LYMPHOCYTIC LEUKAEMIA RECURRENT
     Dosage: 450 MG, QD, DAY 1- 3
     Route: 065
     Dates: start: 20070101
  2. CYCLOPHOSPHAMIDE [Suspect]
     Indication: CHRONIC LYMPHOCYTIC LEUKAEMIA
     Dosage: 400 MG, QD, DAY 1-3
     Route: 065
     Dates: start: 20050715
  3. FLUDARA [Suspect]
     Indication: CHRONIC LYMPHOCYTIC LEUKAEMIA RECURRENT
     Dosage: 45 MG, QD, DAY 1-3
     Route: 065
     Dates: start: 20070101
  4. FLUDARA [Suspect]
     Indication: CHRONIC LYMPHOCYTIC LEUKAEMIA
     Dosage: 50 MG, QDX3, DAY 1-3
     Route: 065
     Dates: start: 20050715

REACTIONS (2)
  - CHRONIC LYMPHOCYTIC LEUKAEMIA RECURRENT [None]
  - TUMOUR LYSIS SYNDROME [None]
